FAERS Safety Report 9349782 (Version 2)
Quarter: 2013Q2

REPORT INFORMATION
  Report Type: Report from Study
  Country: US (occurrence: US)
  Receive Date: 20130614
  Receipt Date: 20130625
  Transmission Date: 20140414
  Serious: Yes (Other)
  Sender: FDA-Public Use
  Company Number: US-US-EMD SERONO, INC.-7217253

PATIENT
  Sex: Female
  Weight: 70 kg

DRUGS (3)
  1. REBIF [Suspect]
     Indication: MULTIPLE SCLEROSIS
     Route: 058
     Dates: start: 20130103
  2. ADVIL                              /00109201/ [Concomitant]
     Indication: PREMEDICATION
  3. PREDNISONE [Concomitant]
     Indication: TRIGEMINAL NEURALGIA

REACTIONS (2)
  - Asthenia [Not Recovered/Not Resolved]
  - Headache [Unknown]
